FAERS Safety Report 17453717 (Version 1)
Quarter: 2020Q1

REPORT INFORMATION
  Report Type: Spontaneous
  Country: PT (occurrence: ES)
  Receive Date: 20200224
  Receipt Date: 20200224
  Transmission Date: 20200409
  Serious: Yes (Hospitalization, Other)
  Sender: FDA-Public Use
  Company Number: PT-SUNOVION-2020SUN000616

PATIENT

DRUGS (4)
  1. ZEBINIX [Suspect]
     Active Substance: ESLICARBAZEPINE ACETATE
     Indication: EPILEPSY
     Dosage: 800 MILLIGRAM, 1X / DAY
     Route: 048
     Dates: start: 20190819, end: 20190905
  2. BETAHISTIDINA [Interacting]
     Active Substance: BETAHISTINE HYDROCHLORIDE
     Indication: DIZZINESS
     Dosage: 32 MILLIGRAM, 1X / DAY
     Route: 048
     Dates: start: 20150824, end: 20190905
  3. CLONAZEPAM. [Interacting]
     Active Substance: CLONAZEPAM
     Indication: AGITATION
     Dosage: 0.5 MILLIGRAM, 1X / DAY
     Route: 048
     Dates: start: 20180828
  4. ARIPIPRAZOL [Interacting]
     Active Substance: ARIPIPRAZOLE
     Indication: DEPRESSION
     Dosage: 10 MILLIGRAM, 1X / DAY
     Route: 048
     Dates: start: 20190208, end: 20190905

REACTIONS (3)
  - Somnolence [Recovered/Resolved]
  - Hallucination [Recovered/Resolved]
  - Drug interaction [Unknown]

NARRATIVE: CASE EVENT DATE: 201908
